FAERS Safety Report 9439824 (Version 1)
Quarter: 2013Q3

REPORT INFORMATION
  Report Type: Spontaneous
  Country: US (occurrence: US)
  Receive Date: 20130805
  Receipt Date: 20130805
  Transmission Date: 20140515
  Serious: No
  Sender: FDA-Public Use
  Company Number: US-PFIZER INC-2013226680

PATIENT
  Sex: Male

DRUGS (2)
  1. CHANTIX [Suspect]
     Indication: SMOKING CESSATION THERAPY
     Dosage: UNK
     Dates: start: 2013
  2. ADVIL [Suspect]
     Indication: HEADACHE
     Dosage: UNK
     Dates: start: 2013

REACTIONS (6)
  - Headache [Unknown]
  - Insomnia [Unknown]
  - Head discomfort [Unknown]
  - Sinus headache [Unknown]
  - Rhinorrhoea [Unknown]
  - Drug ineffective [Unknown]
